FAERS Safety Report 12528709 (Version 1)
Quarter: 2016Q3

REPORT INFORMATION
  Report Type: Spontaneous
  Country: US (occurrence: US)
  Receive Date: 20160705
  Receipt Date: 20160705
  Transmission Date: 20161109
  Serious: Yes (Life-Threatening, Hospitalization, Other)
  Sender: FDA-Public Use
  Company Number: US-SAOL THERAPEUTICS-2016SAO00029

PATIENT
  Age: 17 Year
  Sex: Male

DRUGS (7)
  1. LIORESAL [Suspect]
     Active Substance: BACLOFEN
     Dosage: 1301.7 ?G, \DAY
     Route: 037
  2. BACLOFEN. [Suspect]
     Active Substance: BACLOFEN
     Indication: CEREBRAL PALSY
     Route: 037
  3. LIORESAL [Suspect]
     Active Substance: BACLOFEN
     Indication: CEREBRAL PALSY
     Dosage: 400 ?G, \DAY
     Dates: start: 20141124, end: 20141125
  4. LIORESAL [Suspect]
     Active Substance: BACLOFEN
     Indication: MUSCLE SPASTICITY
     Dosage: 300 ?G, \DAY
     Dates: start: 20141125
  5. BACLOFEN. [Suspect]
     Active Substance: BACLOFEN
     Indication: MUSCLE SPASTICITY
  6. LIORESAL [Suspect]
     Active Substance: BACLOFEN
     Dosage: 1420.8 ?G, \DAY
  7. LIORESAL [Suspect]
     Active Substance: BACLOFEN
     Dosage: 120 ?G, \DAY

REACTIONS (19)
  - Hallucination, visual [Recovered/Resolved]
  - Pathogen resistance [Unknown]
  - Arachnoiditis [Unknown]
  - Performance status decreased [Recovered/Resolved]
  - Cerebrospinal fluid retention [Unknown]
  - Multiple organ dysfunction syndrome [Unknown]
  - Aphasia [Recovered/Resolved]
  - Thinking abnormal [Unknown]
  - Unevaluable event [Unknown]
  - Somnolence [Unknown]
  - Injury associated with device [Unknown]
  - Overdose [Unknown]
  - Heart rate increased [Recovered/Resolved]
  - Insomnia [Recovered/Resolved]
  - Staphylococcal infection [Unknown]
  - Pseudomonas infection [Unknown]
  - Cerebrospinal fluid leakage [Unknown]
  - Drug withdrawal syndrome [Recovered/Resolved]
  - Device dislocation [Recovered/Resolved]

NARRATIVE: CASE EVENT DATE: 200802
